FAERS Safety Report 23107902 (Version 2)
Quarter: 2023Q4

REPORT INFORMATION
  Report Type: Spontaneous
  Country: IE (occurrence: IE)
  Receive Date: 20231026
  Receipt Date: 20231116
  Transmission Date: 20240109
  Serious: Yes (Death, Other)
  Sender: FDA-Public Use
  Company Number: IE-GlaxoSmithKline-B0484339A

PATIENT
  Age: 48 Year
  Sex: Female

DRUGS (4)
  1. ACETAMINOPHEN [Suspect]
     Active Substance: ACETAMINOPHEN
     Indication: Product used for unknown indication
     Route: 065
  2. CODEINE [Suspect]
     Active Substance: CODEINE
     Indication: Back pain
     Route: 048
  3. ALCOHOL [Suspect]
     Active Substance: ALCOHOL
     Indication: Product used for unknown indication
     Route: 048
  4. ACETAMINOPHEN\CAFFEINE\CODEINE PHOSPHATE [Suspect]
     Active Substance: ACETAMINOPHEN\CAFFEINE\CODEINE PHOSPHATE
     Indication: Back pain
     Route: 048

REACTIONS (7)
  - Dependence [Fatal]
  - Toxicity to various agents [Fatal]
  - Respiratory failure [Fatal]
  - Pancreatitis [Unknown]
  - Loss of consciousness [Unknown]
  - Drug ineffective [Unknown]
  - Accidental overdose [Unknown]
